FAERS Safety Report 24680232 (Version 1)
Quarter: 2024Q4

REPORT INFORMATION
  Report Type: Spontaneous
  Country: MA (occurrence: MA)
  Receive Date: 20241129
  Receipt Date: 20241129
  Transmission Date: 20250115
  Serious: Yes (Hospitalization, Other)
  Sender: PURDUE
  Company Number: MA-PURDUE-USA-2024-0313597

PATIENT
  Age: 14 Month
  Sex: Male

DRUGS (1)
  1. DEXTROAMPHETAMINE SACCHARATE, AMPHETAMINE ASPARTATE, DEXTROAMPHETAMINE [Suspect]
     Active Substance: AMPHETAMINE ASPARTATE\AMPHETAMINE SULFATE\DEXTROAMPHETAMINE SACCHARATE\DEXTROAMPHETAMINE SULFATE
     Indication: Product used for unknown indication
     Dosage: INGESTED HALF OF AN AMPHETAMINE TABLET (5 MG)
     Route: 048

REACTIONS (10)
  - Ventricular extrasystoles [Recovered/Resolved]
  - Seizure [Recovered/Resolved]
  - Hyperthermia [Recovered/Resolved]
  - Hypertension [Recovered/Resolved]
  - Tachycardia [Recovered/Resolved]
  - Tachypnoea [Recovered/Resolved]
  - Mydriasis [Recovered/Resolved]
  - Toxicity to various agents [Unknown]
  - Drug screen positive [Unknown]
  - Accidental exposure to product [Unknown]
